FAERS Safety Report 7587334-7 (Version None)
Quarter: 2011Q3

REPORT INFORMATION
  Report Type: 
  Country: None (occurrence: None)
  Receive Date: 20110701
  Receipt Date: 20110628
  Transmission Date: 20111222
  Serious: Yes (Other)
  Sender: FDA-Public Use
  Company Number: US-ABBOTT-08P-163-0471833-00

PATIENT
  Age: 10 Year
  Sex: Female

DRUGS (14)
  1. INFLIXIMAB [Suspect]
     Indication: JUVENILE ARTHRITIS
     Route: 042
  2. INFLIXIMAB [Suspect]
     Route: 042
  3. PREDNISONE [Suspect]
     Indication: JUVENILE ARTHRITIS
     Dosage: UNSPECIFIED LOW DOSE
  4. ENBREL [Suspect]
     Indication: JUVENILE ARTHRITIS
  5. METHADONE HCL [Concomitant]
     Indication: PRODUCT USED FOR UNKNOWN INDICATION
  6. ADALIMUMAB [Suspect]
     Indication: JUVENILE ARTHRITIS
  7. CYCLOPHOSPHAMIDE [Suspect]
     Indication: JUVENILE ARTHRITIS
     Route: 042
  8. METHOTREXATE [Suspect]
     Indication: JUVENILE ARTHRITIS
  9. NAPROXEN [Concomitant]
     Indication: PRODUCT USED FOR UNKNOWN INDICATION
  10. INFLIXIMAB [Suspect]
     Route: 042
  11. LEFLUNOMIDE [Suspect]
     Indication: JUVENILE ARTHRITIS
  12. RITUXIMAB [Suspect]
     Indication: JUVENILE ARTHRITIS
  13. KINERET [Suspect]
     Indication: JUVENILE ARTHRITIS
  14. THALIDOMIDE [Suspect]
     Indication: JUVENILE ARTHRITIS

REACTIONS (1)
  - HODGKIN'S DISEASE STAGE II [None]
